FAERS Safety Report 7378272-3 (Version None)
Quarter: 2011Q1

REPORT INFORMATION
  Report Type: 
  Country: None (occurrence: None)
  Receive Date: 20110328
  Receipt Date: 20110317
  Transmission Date: 20110831
  Serious: Yes (Other)
  Sender: FDA-Public Use
  Company Number: JP-ASTRAZENECA-2011SE16559

PATIENT
  Age: 54 Year
  Sex: Female

DRUGS (21)
  1. SOLANTAL [Concomitant]
  2. RISUMIC [Concomitant]
  3. METLIGINE [Concomitant]
     Route: 048
  4. LOXONIN [Concomitant]
  5. SEROQUEL [Suspect]
     Route: 048
  6. CLEANAL [Concomitant]
  7. DIAZEPAM [Concomitant]
  8. TAKEPRON [Concomitant]
  9. GASMOTIN [Concomitant]
  10. THEO-DUR [Concomitant]
  11. CYTOTEC [Concomitant]
  12. AKINETON [Concomitant]
  13. ANAFRANIL [Concomitant]
  14. TRANSAMIN [Concomitant]
  15. OPALMON [Concomitant]
  16. ROHYPNOL [Concomitant]
  17. MUCOSOLVAN [Concomitant]
  18. DEPAS [Concomitant]
  19. SINGULAIR [Concomitant]
  20. PLAVIX [Concomitant]
  21. MAGLAX [Concomitant]

REACTIONS (1)
  - DIABETES INSIPIDUS [None]
